FAERS Safety Report 9177452 (Version 1)
Quarter: 2013Q1

REPORT INFORMATION
  Report Type: Spontaneous
  Country: US (occurrence: US)
  Receive Date: 20130321
  Receipt Date: 20130321
  Transmission Date: 20140127
  Serious: No
  Sender: FDA-Public Use
  Company Number: US-MYLANLABS-2012S1024506

PATIENT
  Age: 63 Year
  Sex: Female

DRUGS (4)
  1. BROVANA [Suspect]
     Indication: DYSPNOEA
     Route: 055
     Dates: start: 2012
  2. BUDESONIDE [Suspect]
     Route: 055
  3. IPRATROPIUM BROMIDE [Suspect]
     Route: 055
  4. ALBUTEROL SULFATE INHALATION SOLUTION [Suspect]
     Route: 055

REACTIONS (1)
  - Heart rate increased [Not Recovered/Not Resolved]
